FAERS Safety Report 20493709 (Version 2)
Quarter: 2022Q1

REPORT INFORMATION
  Report Type: Report from Study
  Country: IT (occurrence: IT)
  Receive Date: 20220221
  Receipt Date: 20220304
  Transmission Date: 20220423
  Serious: No
  Sender: FDA-Public Use
  Company Number: IT-AMGEN-ITANI2022026935

PATIENT

DRUGS (2)
  1. AMG-510 [Suspect]
     Active Substance: AMG-510
     Indication: Non-small cell lung cancer
     Dosage: UNK
     Route: 065
     Dates: end: 202201
  2. AMG-510 [Suspect]
     Active Substance: AMG-510
     Dosage: RESUMED AT A REDUCED DOSE
     Route: 065
     Dates: end: 20220128

REACTIONS (1)
  - Diarrhoea [Unknown]

NARRATIVE: CASE EVENT DATE: 20220101
